FAERS Safety Report 7401469-0 (Version None)
Quarter: 2011Q2

REPORT INFORMATION
  Report Type: 
  Country: None (occurrence: None)
  Receive Date: 20110408
  Receipt Date: 20110328
  Transmission Date: 20111010
  Serious: Yes (Congenital Anomaly, Other)
  Sender: FDA-Public Use
  Company Number: US-BRISTOL-MYERS SQUIBB COMPANY-15652894

PATIENT

DRUGS (3)
  1. FLUPHENAZINE ENANTHATE [Suspect]
     Dosage: 50MG IN 14TH WEEK INCREASED TO 100 MG IM EVERY 2 WEEKS AT 24 WEEKS' GESTATION
     Route: 064
  2. DOXYLAMINE [Suspect]
     Route: 064
  3. BENDECTIN [Suspect]
     Dosage: UP TO 1200 MG/DAY
     Route: 064

REACTIONS (10)
  - RECTOURETHRAL FISTULA [None]
  - CLEFT PALATE [None]
  - SKULL MALFORMATION [None]
  - EYE DISORDER [None]
  - HYPERTELORISM OF ORBIT [None]
  - ANAL ATRESIA [None]
  - HYPOSPADIAS [None]
  - EYE MOVEMENT DISORDER [None]
  - CLEFT LIP [None]
  - NYSTAGMUS [None]
